FAERS Safety Report 9846010 (Version 1)
Quarter: 2013Q4

REPORT INFORMATION
  Report Type: Spontaneous
  Country: US (occurrence: None)
  Receive Date: 20131219
  Receipt Date: 20131219
  Transmission Date: 20140711
  Serious: Yes (Disabling)
  Sender: FDA-Public Use
  Company Number: 163-20785-13040276

PATIENT
  Age: 67 Year
  Sex: Female

DRUGS (4)
  1. THALOMID (THALIDOMIDE) (100 MILLIGRAM, CAPSULES) [Suspect]
     Indication: PLASMA CELL MYELOMA
     Dosage: 100 MG, 1 IN 1 D, PO
     Route: 048
     Dates: start: 201106, end: 2011
  2. TREANDA Z(BENDAMUSTINE HYDROCHLORIDE) [Concomitant]
  3. KYPROLIS (CARFILZOMIB) [Concomitant]
  4. VELCADE (BORTEZOMIB) [Concomitant]

REACTIONS (3)
  - Plasma cell myeloma [None]
  - Full blood count decreased [None]
  - Drug ineffective [None]
